FAERS Safety Report 6355929-4 (Version None)
Quarter: 2009Q3

REPORT INFORMATION
  Report Type: 
  Country: None (occurrence: None)
  Receive Date: 20090915
  Receipt Date: 20090908
  Transmission Date: 20100115
  Serious: Yes (Death, Hospitalization)
  Sender: FDA-Public Use
  Company Number: NL-ROCHE-513428

PATIENT
  Sex: Male

DRUGS (8)
  1. CAPECITABINE [Suspect]
     Dosage: GIVEN ON DAYS 1 TO 14 EVERY 21 DAY CYCLE.
     Route: 048
     Dates: start: 20061020
  2. BEVACIZUMAB [Suspect]
     Dosage: GIVEN ON DAY 1 OF EACH 21 DAY CYCLE.
     Route: 042
     Dates: start: 20061020
  3. OXALIPLATIN [Suspect]
     Dosage: GIVEN ON DAY 1 OF EACH 21 DAY CYCLE.
     Route: 042
     Dates: start: 20061020
  4. CETUXIMAB [Suspect]
     Dosage: LOADING DOSE AS PER PROTOCOL - CYCLE 1.
     Route: 042
     Dates: start: 20061020
  5. CETUXIMAB [Suspect]
     Dosage: GIVEN ON DAYS 1, 8 AND 15 OF EACH 21 DAY CYCLE.
     Route: 042
     Dates: start: 20061110
  6. ASCAL [Concomitant]
  7. SELEKTINE [Concomitant]
  8. FOSINOPRIL SODIUM [Concomitant]

REACTIONS (7)
  - DEATH [None]
  - DIARRHOEA [None]
  - HAEMOTHORAX [None]
  - METABOLIC ACIDOSIS [None]
  - PNEUMOTHORAX [None]
  - PULMONARY EMBOLISM [None]
  - RENAL FAILURE [None]
